FAERS Safety Report 14621821 (Version 2)
Quarter: 2018Q1

REPORT INFORMATION
  Report Type: Spontaneous
  Country: IT (occurrence: IT)
  Receive Date: 20180310
  Receipt Date: 20180321
  Transmission Date: 20180509
  Serious: Yes (Other)
  Sender: FDA-Public Use
  Company Number: IT-JNJFOC-20171121779

PATIENT
  Age: 34 Year
  Sex: Male

DRUGS (2)
  1. IBUPROFEN. [Suspect]
     Active Substance: IBUPROFEN
     Route: 065
  2. IBUPROFEN. [Suspect]
     Active Substance: IBUPROFEN
     Indication: PRODUCT USED FOR UNKNOWN INDICATION
     Route: 065

REACTIONS (4)
  - Large intestinal ulcer [Recovered/Resolved]
  - Colitis [Recovered/Resolved]
  - Intestinal stenosis [Recovered/Resolved]
  - Abdominal discomfort [Recovered/Resolved]
